FAERS Safety Report 8170072-X (Version None)
Quarter: 2012Q1

REPORT INFORMATION
  Report Type: 
  Country: None (occurrence: None)
  Receive Date: 20120106
  Receipt Date: 20110714
  Transmission Date: 20120608
  Serious: Yes (Other)
  Sender: FDA-Public Use
  Company Number: 20110475

PATIENT
  Age: 37 Year
  Sex: Female

DRUGS (1)
  1. VENOFER [Suspect]
     Indication: IRON DEFICIENCY ANAEMIA
     Dosage: 300 MG/100 CC NS OVER 40 MINS. INJECTION NOS
     Dates: start: 20110713, end: 20110713

REACTIONS (1)
  - DRUG HYPERSENSITIVITY [None]
